FAERS Safety Report 13717190 (Version 1)
Quarter: 2017Q3

REPORT INFORMATION
  Report Type: Spontaneous
  Country: US (occurrence: US)
  Receive Date: 20170705
  Receipt Date: 20170705
  Transmission Date: 20171127
  Serious: Yes (Hospitalization)
  Sender: FDA-Public Use
  Company Number: US-JNJFOC-20170624390

PATIENT
  Age: 46 Year
  Sex: Female
  Weight: 86.18 kg

DRUGS (5)
  1. INVOKANA [Suspect]
     Active Substance: CANAGLIFLOZIN
     Indication: TYPE 2 DIABETES MELLITUS
     Route: 048
     Dates: start: 2017, end: 2017
  2. INVOKANA [Suspect]
     Active Substance: CANAGLIFLOZIN
     Indication: TYPE 2 DIABETES MELLITUS
     Route: 048
     Dates: start: 2017, end: 201706
  3. METOPROLOL. [Concomitant]
     Active Substance: METOPROLOL
     Indication: MYOCARDITIS
     Route: 065
     Dates: start: 2015
  4. LISINOPRIL. [Concomitant]
     Active Substance: LISINOPRIL
     Indication: PROPHYLAXIS
     Route: 065
  5. ATORVASTATIN [Concomitant]
     Active Substance: ATORVASTATIN
     Indication: MYOCARDITIS
     Route: 065
     Dates: start: 2015

REACTIONS (3)
  - Pancreatitis acute [Unknown]
  - Fear [Not Recovered/Not Resolved]
  - Injection site thrombosis [Recovered/Resolved]

NARRATIVE: CASE EVENT DATE: 201706
